FAERS Safety Report 21604334 (Version 2)
Quarter: 2022Q4

REPORT INFORMATION
  Report Type: Spontaneous
  Country: US (occurrence: US)
  Receive Date: 20221116
  Receipt Date: 20221219
  Transmission Date: 20230113
  Serious: Yes (Other)
  Sender: FDA-Public Use
  Company Number: US-BRISTOL-MYERS SQUIBB COMPANY-2022-136715

PATIENT
  Age: 61 Year
  Sex: Female

DRUGS (4)
  1. POMALYST [Suspect]
     Active Substance: POMALIDOMIDE
     Indication: Plasma cell myeloma
     Route: 048
     Dates: start: 202208
  2. POMALYST [Suspect]
     Active Substance: POMALIDOMIDE
     Route: 048
     Dates: start: 20220810
  3. POMALYST [Suspect]
     Active Substance: POMALIDOMIDE
  4. POMALYST [Suspect]
     Active Substance: POMALIDOMIDE

REACTIONS (2)
  - Neutropenia [Unknown]
  - Pneumonia [Unknown]
